FAERS Safety Report 6220842-X (Version None)
Quarter: 2009Q2

REPORT INFORMATION
  Report Type: 
  Country: None (occurrence: None)
  Receive Date: 20090610
  Receipt Date: 20090529
  Transmission Date: 20091009
  Serious: Yes (Death, Other)
  Sender: FDA-Public Use
  Company Number: CA-PFIZER INC-2009212395

PATIENT
  Age: 78 Year

DRUGS (20)
  1. DIFLUCAN [Suspect]
     Indication: MUCOSAL INFLAMMATION
     Dosage: 150 MG, SINGLE
     Route: 048
     Dates: start: 20090511, end: 20090511
  2. DIFLUCAN [Suspect]
     Indication: CANDIDIASIS
  3. FLAGYL [Suspect]
  4. CLORAZEPATE DIPOTASSIUM [Concomitant]
     Dosage: UNK
  5. VANCOMYCIN [Concomitant]
     Indication: CLOSTRIDIAL INFECTION
     Dosage: 125 MG, ALTERNATE DAY
     Route: 048
     Dates: start: 20090506, end: 20090512
  6. ALL OTHER THERAPEUTIC PRODUCTS [Concomitant]
     Indication: PROPHYLAXIS
     Dosage: UNK
     Dates: end: 20090512
  7. PANTOPRAZOLE [Concomitant]
     Indication: ABDOMINAL DISCOMFORT
     Dosage: 40 MG, 1X/DAY
     Route: 048
     Dates: start: 20090420, end: 20090512
  8. PANTOPRAZOLE [Concomitant]
     Indication: DYSPEPSIA
  9. DOMPERIDONE [Concomitant]
     Indication: CONSTIPATION
     Dosage: 10 MG, 4X/DAY
     Dates: start: 20090506, end: 20090511
  10. ALFACALCIDOL [Concomitant]
     Indication: RENAL FAILURE
     Dosage: 0.75 MG, 3 TIMES/WEEK
     Dates: start: 20090422, end: 20090512
  11. SALBUTAMOL [Concomitant]
     Indication: CHRONIC OBSTRUCTIVE PULMONARY DISEASE
     Dosage: 2 INHALATIONS, 4X/DAY
     Route: 055
     Dates: start: 20090420, end: 20090512
  12. ENOXAPARIN SODIUM [Concomitant]
     Indication: ANTICOAGULANT THERAPY
     Dosage: 30 MG, 1X/DAY
     Route: 058
     Dates: start: 20090508, end: 20090512
  13. ERYTHROPOIETIN [Concomitant]
     Indication: ANAEMIA
     Dosage: 10000 IU, TWICE WEEKLY
     Route: 058
     Dates: start: 20090507, end: 20090512
  14. SIMVASTATIN [Concomitant]
     Indication: PROPHYLAXIS
     Dosage: 40 MG, 1X/DAY
     Dates: start: 20090420, end: 20090511
  15. IMDUR - SLOW RELEASE 60 MG LA [Concomitant]
     Dosage: 30 MG, 4 TIMES/WEEK
     Dates: start: 20090420, end: 20090512
  16. NORVASC [Concomitant]
     Indication: HYPERTENSION
     Dosage: 2.5 MG, 1X/DAY
     Dates: start: 20090427, end: 20090511
  17. ACETAMINOPHEN [Concomitant]
     Indication: PAIN
     Dosage: 650 MG, EVERY 4 HRS
     Dates: start: 20090420, end: 20090511
  18. BENZYDAMINE [Concomitant]
     Indication: MUCOSAL INFLAMMATION
     Dosage: 15 ML, 4X/DAY
     Route: 002
     Dates: start: 20090504, end: 20090512
  19. BENZYDAMINE [Concomitant]
     Indication: CANDIDIASIS
  20. DIMENHYDRINATE [Concomitant]
     Indication: NAUSEA
     Dosage: 50 MG, EVERY 6 HOURS
     Dates: start: 20090501, end: 20090512

REACTIONS (5)
  - CONFUSIONAL STATE [None]
  - DEATH [None]
  - DELIRIUM [None]
  - MOANING [None]
  - SOMNOLENCE [None]
